FAERS Safety Report 7595779-4 (Version None)
Quarter: 2011Q3

REPORT INFORMATION
  Report Type: 
  Country: None (occurrence: None)
  Receive Date: 20110707
  Receipt Date: 20110628
  Transmission Date: 20111222
  Serious: Yes (Hospitalization)
  Sender: FDA-Public Use
  Company Number: FR-PFIZER INC-2011143247

PATIENT
  Age: 72 Year
  Sex: Male

DRUGS (2)
  1. MITOMYCIN [Suspect]
     Indication: BLADDER CANCER
     Dosage: UNK
     Route: 043
     Dates: start: 20050101, end: 20070101
  2. SULFASALAZINE [Suspect]
     Indication: LARGE INTESTINAL ULCER
     Dosage: UNK
     Dates: end: 20070101

REACTIONS (1)
  - PULMONARY FIBROSIS [None]
